FAERS Safety Report 6114623 (Version 2)
Quarter: 2013Q2

REPORT INFORMATION
  Report Type: Spontaneous
  Country: US (occurrence: US)
  Receive Date: 20060824
  Receipt Date: 20130404
  Transmission Date: 20140414
  Serious: Yes (Other)
  Sender: FDA-Public Use
  Company Number: US-BRISTOL-MYERS SQUIBB COMPANY-13481254

PATIENT
  Age: 72 Year
  Sex: Female
  Weight: 75.73 kg

DRUGS (5)
  1. GLUCOPHAGE [Suspect]
     Indication: TYPE 2 DIABETES MELLITUS
  2. BYETTA [Suspect]
     Indication: TYPE 2 DIABETES MELLITUS
     Dosage: 27MAR-30MAR2006?17MAY-18JUL2006
     Route: 058
     Dates: start: 200602
  3. KEFLEX [Suspect]
     Indication: DENTAL DISORDER PROPHYLAXIS
     Dates: start: 200602, end: 200603
  4. AMARYL [Concomitant]
  5. PRANDIN [Concomitant]
     Dates: start: 2005, end: 20060612

REACTIONS (9)
  - Weight decreased [Unknown]
  - Hypoglycaemia [Recovered/Resolved]
  - Blood glucose decreased [Unknown]
  - Abdominal distension [Recovered/Resolved]
  - Headache [Unknown]
  - Dyspepsia [Unknown]
  - Nausea [Recovered/Resolved]
  - Flatulence [Not Recovered/Not Resolved]
  - Asthenia [Recovered/Resolved]
